FAERS Safety Report 20277140 (Version 1)
Quarter: 2022Q1

REPORT INFORMATION
  Report Type: Spontaneous
  Country: US (occurrence: US)
  Receive Date: 20220102
  Receipt Date: 20220102
  Transmission Date: 20220423
  Serious: Yes (Death, Other)
  Sender: FDA-Public Use
  Company Number: US-BIOVITRUM-2021US13024

PATIENT
  Age: 4 Month
  Sex: Female

DRUGS (2)
  1. SYNAGIS [Suspect]
     Active Substance: PALIVIZUMAB
     Indication: Fallot^s tetralogy
     Route: 030
     Dates: start: 20211102
  2. SYNAGIS [Suspect]
     Active Substance: PALIVIZUMAB
     Indication: DiGeorge^s syndrome

REACTIONS (1)
  - Death [Fatal]

NARRATIVE: CASE EVENT DATE: 20211209
